FAERS Safety Report 7507960-0 (Version None)
Quarter: 2011Q2

REPORT INFORMATION
  Report Type: 
  Country: None (occurrence: None)
  Receive Date: 20110519
  Receipt Date: 20110511
  Transmission Date: 20111010
  Serious: Yes (Hospitalization, Disabling, Other)
  Sender: FDA-Public Use
  Company Number: 2010MA001018

PATIENT
  Sex: Male
  Weight: 99.7913 kg

DRUGS (32)
  1. METOCLOPRAMIDE [Suspect]
     Dosage: 50 MG;
     Dates: start: 20070101, end: 20090101
  2. BENTYL [Concomitant]
  3. OXYCONTIN [Concomitant]
  4. PREVPAC [Concomitant]
  5. FIORINAL [Concomitant]
  6. CATAFLAM [Concomitant]
  7. ROXICODONE [Concomitant]
  8. NEURONTIN [Concomitant]
  9. ZANTAC [Concomitant]
  10. FIORICET [Concomitant]
  11. CARAFATE [Concomitant]
  12. HYDROCODONE BITARTRATE [Concomitant]
  13. DIAZEPAM [Concomitant]
  14. DARVOCET [Concomitant]
  15. PERCOCET [Concomitant]
  16. PROPOXYPHENE HYDROCHLORIDE [Concomitant]
  17. PRILOSEC [Concomitant]
  18. NEXIUM [Concomitant]
  19. SIMVASTATIN [Concomitant]
  20. CELEXA [Concomitant]
  21. IMITREX [Concomitant]
  22. TRAZODONE HCL [Concomitant]
  23. GEMFIBROZIL [Concomitant]
  24. DONNATAL [Concomitant]
  25. HYDROCHLOROTHIAZIDE [Concomitant]
  26. CLONIDINE [Concomitant]
  27. ZYPREXA [Concomitant]
  28. ELAVIL [Concomitant]
  29. LORCET-HD [Concomitant]
  30. AMBIEN [Concomitant]
  31. XANAX [Concomitant]
  32. ZOCOR [Concomitant]

REACTIONS (38)
  - RECTAL HAEMORRHAGE [None]
  - SOMNOLENCE [None]
  - POST-TRAUMATIC STRESS DISORDER [None]
  - MENTAL DISORDER [None]
  - QUALITY OF LIFE DECREASED [None]
  - ECONOMIC PROBLEM [None]
  - OSTEOARTHRITIS [None]
  - DIZZINESS [None]
  - TOXICOLOGIC TEST ABNORMAL [None]
  - BALANCE DISORDER [None]
  - PAIN [None]
  - GRIMACING [None]
  - EXCESSIVE EYE BLINKING [None]
  - DEPRESSION [None]
  - ROAD TRAFFIC ACCIDENT [None]
  - HYPERLIPIDAEMIA [None]
  - VOMITING [None]
  - HEADACHE [None]
  - INSOMNIA [None]
  - TARDIVE DYSKINESIA [None]
  - DYSKINESIA [None]
  - AGITATION [None]
  - MELAENA [None]
  - JOINT INJURY [None]
  - MULTIPLE INJURIES [None]
  - JOINT DISLOCATION [None]
  - NAUSEA [None]
  - ALCOHOL USE [None]
  - PRESYNCOPE [None]
  - SUBSTANCE ABUSE [None]
  - PERSONALITY CHANGE [None]
  - NERVOUS SYSTEM DISORDER [None]
  - BRUXISM [None]
  - EXTRAPYRAMIDAL DISORDER [None]
  - ANXIETY [None]
  - GASTROOESOPHAGEAL REFLUX DISEASE [None]
  - MUSCLE STRAIN [None]
  - CONTUSION [None]
